FAERS Safety Report 9088696 (Version 1)
Quarter: 2013Q1

REPORT INFORMATION
  Report Type: Report from Study
  Country: US (occurrence: US)
  Receive Date: 20130131
  Receipt Date: 20130131
  Transmission Date: 20140127
  Serious: Yes (Hospitalization)
  Sender: FDA-Public Use
  Company Number: US-ABBOTT-12P-163-0989238-00

PATIENT
  Age: 49 Year
  Sex: Female
  Weight: 79.45 kg

DRUGS (11)
  1. HUMIRA [Suspect]
     Indication: PSORIATIC ARTHROPATHY
     Dates: start: 200806
  2. HUMIRA [Suspect]
     Indication: PSORIASIS
  3. ALLOPURINOL [Concomitant]
     Indication: PRODUCT USED FOR UNKNOWN INDICATION
  4. BUPROPRION [Concomitant]
     Indication: PRODUCT USED FOR UNKNOWN INDICATION
  5. CLONAZEPAM [Concomitant]
     Indication: PRODUCT USED FOR UNKNOWN INDICATION
  6. FERROUS SULFATE [Concomitant]
     Indication: PRODUCT USED FOR UNKNOWN INDICATION
  7. NITROFURANTOIN [Concomitant]
     Indication: PRODUCT USED FOR UNKNOWN INDICATION
  8. FLUOXETIN [Concomitant]
     Indication: PRODUCT USED FOR UNKNOWN INDICATION
  9. OMEPRAZOLE [Concomitant]
     Indication: PRODUCT USED FOR UNKNOWN INDICATION
  10. PERCOCET [Concomitant]
     Indication: PRODUCT USED FOR UNKNOWN INDICATION
  11. VITAMIN [Concomitant]
     Indication: PRODUCT USED FOR UNKNOWN INDICATION

REACTIONS (1)
  - Cholecystectomy [Recovering/Resolving]
